FAERS Safety Report 9897427 (Version 4)
Quarter: 2014Q1

REPORT INFORMATION
  Report Type: Spontaneous
  Country: US (occurrence: US)
  Receive Date: 20140214
  Receipt Date: 20140306
  Transmission Date: 20141002
  Serious: Yes (Hospitalization)
  Sender: FDA-Public Use
  Company Number: US-JNJFOC-20140204244

PATIENT
  Age: 79 Year
  Sex: Male
  Weight: 70.31 kg

DRUGS (9)
  1. XARELTO [Suspect]
     Indication: CEREBROVASCULAR ACCIDENT PROPHYLAXIS
     Route: 048
     Dates: start: 201312
  2. XARELTO [Suspect]
     Indication: ATRIAL FIBRILLATION
     Route: 048
     Dates: start: 201312
  3. ASPIRIN [Suspect]
     Indication: ANTIPLATELET THERAPY
     Route: 065
  4. ASPIRIN [Suspect]
     Indication: ANTIPLATELET THERAPY
     Route: 065
  5. NEXIUM [Concomitant]
     Indication: DYSPEPSIA
     Route: 065
  6. FLOMAX [Concomitant]
     Route: 065
  7. CRESTOR [Concomitant]
     Route: 065
  8. ULORIC [Concomitant]
     Route: 065
  9. TOPROL [Concomitant]
     Route: 065

REACTIONS (3)
  - Gastrointestinal haemorrhage [Recovering/Resolving]
  - Haemoglobin decreased [Recovering/Resolving]
  - Tachycardia [Unknown]
